FAERS Safety Report 18750143 (Version 2)
Quarter: 2021Q1

REPORT INFORMATION
  Report Type: Spontaneous
  Country: US (occurrence: US)
  Receive Date: 20210118
  Receipt Date: 20210209
  Transmission Date: 20210419
  Serious: Yes (Death, Hospitalization)
  Sender: FDA-Public Use
  Company Number: US-CELLTRION INC.-2021US000303

PATIENT

DRUGS (5)
  1. INFLIXIMAB (UNKNOWN) [Suspect]
     Active Substance: INFLIXIMAB
     Indication: PNEUMONITIS
     Dosage: 5 MG/KG AT DAY 4
  2. METHYLPREDNISOLONE. [Concomitant]
     Active Substance: METHYLPREDNISOLONE
  3. IMMUNOGLOBULIN I.V [Suspect]
     Active Substance: HUMAN IMMUNOGLOBULIN G
     Indication: PNEUMONITIS
     Dosage: 0.5 MG/KG/DAY AT DAY 8; 1 DOSE GIVEN 4 DAYS AFTER INFLIXIMAB
     Route: 042
  4. REMICADE [Suspect]
     Active Substance: INFLIXIMAB
     Indication: PNEUMONITIS
     Dosage: 5 MG/KG, X 1 DOSE
     Route: 042
     Dates: start: 20110714
  5. PREDNISONE. [Concomitant]
     Active Substance: PREDNISONE
     Dosage: HIGH?DOSE; MEDIAN DOSE OF PREDNISONE EQUIVALENTS: 75 MG/DAY (RANGE: 50?237.5 MG/DAY)

REACTIONS (3)
  - Off label use [Unknown]
  - Condition aggravated [Fatal]
  - Pneumonitis [Fatal]
